FAERS Safety Report 8480831-1 (Version None)
Quarter: 2012Q3

REPORT INFORMATION
  Report Type: 
  Country: None (occurrence: None)
  Receive Date: 20120702
  Receipt Date: 20120620
  Transmission Date: 20120928
  Serious: Yes (Hospitalization)
  Sender: FDA-Public Use
  Company Number: US-BAYER-2012-044362

PATIENT
  Age: 28 Year
  Sex: Female
  Weight: 68.027 kg

DRUGS (6)
  1. ZOLOFT [Concomitant]
     Dosage: 50 MG, DAILY
     Dates: end: 20070501
  2. XANAX [Concomitant]
     Dosage: 0.25 MG, BID
     Dates: end: 20070501
  3. ZITHROMAX [Concomitant]
  4. BIAXIN [Concomitant]
  5. YAZ [Suspect]
     Dosage: UNK
     Dates: start: 20060520, end: 20060601
  6. BUSPIRONE HCL [Concomitant]
     Dosage: 5 MG, BID
     Route: 048

REACTIONS (7)
  - PULMONARY EMBOLISM [None]
  - DYSPNOEA [None]
  - NON-CARDIAC CHEST PAIN [None]
  - INJURY [None]
  - PAIN [None]
  - BACK PAIN [None]
  - VENOUS THROMBOSIS LIMB [None]
